FAERS Safety Report 17516378 (Version 2)
Quarter: 2020Q1

REPORT INFORMATION
  Report Type: Spontaneous
  Country: US (occurrence: US)
  Receive Date: 20200309
  Receipt Date: 20200311
  Transmission Date: 20200409
  Serious: Yes (Other)
  Sender: FDA-Public Use
  Company Number: US-PFIZER INC-2020098021

PATIENT
  Sex: Female
  Weight: 1.81 kg

DRUGS (2)
  1. TRASTUZUMAB. [Suspect]
     Active Substance: TRASTUZUMAB
     Indication: NODULE
     Dosage: UNK, CYCLIC (FIRST DOSE WEEKS (-12), LAST DOSE WEEKS (30))
     Route: 064
  2. PACLITAXEL. [Concomitant]
     Active Substance: PACLITAXEL
     Indication: NODULE
     Dosage: UNK, CYCLIC

REACTIONS (2)
  - Maternal exposure during pregnancy [Unknown]
  - Premature baby [Unknown]
